FAERS Safety Report 7577714-8 (Version None)
Quarter: 2011Q2

REPORT INFORMATION
  Report Type: 
  Country: None (occurrence: None)
  Receive Date: 20110628
  Receipt Date: 20100527
  Transmission Date: 20111010
  Serious: Yes (Other)
  Sender: FDA-Public Use
  Company Number: US-PFIZER INC-2010060770

PATIENT
  Sex: Female
  Weight: 63.039 kg

DRUGS (6)
  1. VITAMIN E [Concomitant]
     Dosage: UNK
  2. DEPO-SUBQ PROVERA 104 [Suspect]
     Indication: DYSMENORRHOEA
     Dosage: 104 MG, EVERY 3 MONTHS
     Dates: start: 20100204, end: 20100204
  3. VITAMIN D [Concomitant]
     Dosage: UNK
  4. DEPO-SUBQ PROVERA 104 [Suspect]
     Indication: ENDOMETRIOSIS
     Dosage: 104 MG, EVERY 3 MONTHS
     Dates: start: 20091116, end: 20091116
  5. DEPO-SUBQ PROVERA 104 [Suspect]
     Dosage: 104 MG, EVERY 3 MONTHS
     Dates: start: 20100506
  6. IBUPROFEN [Concomitant]
     Indication: PAIN
     Dosage: 800 MG, AS NEEDED
     Dates: start: 20090901

REACTIONS (1)
  - INJECTION SITE REACTION [None]
